FAERS Safety Report 5861325-6 (Version None)
Quarter: 2008Q3

REPORT INFORMATION
  Report Type: 
  Country: None (occurrence: None)
  Receive Date: 20080826
  Receipt Date: 20080812
  Transmission Date: 20090109
  Serious: Yes (Hospitalization)
  Sender: FDA-Public Use
  Company Number: 2008002010

PATIENT
  Age: 57 Year
  Sex: Male
  Weight: 79.4 kg

DRUGS (4)
  1. ERLOTINIB (ERLOTINIB) (TABLET) (ERLOTINIB) [Suspect]
     Indication: OROPHARYNGEAL CANCER STAGE UNSPECIFIED
     Dosage: (150 MG,QD), ORAL
     Route: 048
  2. BEVACIZUMAB (INJECTION FOR INFUSION) [Suspect]
     Dosage: (150 MG/KG, DAYS 1 AND 22), INTRAVENOUS
     Route: 042
  3. FLOUROURACIL (FLUOROURACIL) (INJETION FOR INFUSION) [Suspect]
     Dosage: (200 MG/M2), INTRAVENOUS
     Route: 042
  4. PACLITAXEL [Suspect]
     Dosage: (200MG/M2), INTRAVENOUS
     Route: 042

REACTIONS (5)
  - ACTIVATED PARTIAL THROMBOPLASTIN TIME PROLONGED [None]
  - HAEMATOCRIT DECREASED [None]
  - HAEMOGLOBIN DECREASED [None]
  - POST PROCEDURAL HAEMORRHAGE [None]
  - PROTHROMBIN TIME PROLONGED [None]
